FAERS Safety Report 8934961 (Version 2)
Quarter: 2012Q4

REPORT INFORMATION
  Report Type: 
  Country: US (occurrence: US)
  Receive Date: 20121129
  Receipt Date: 20121130
  Transmission Date: 20130627
  Serious: No
  Sender: FDA-Public Use
  Company Number: US-009507513-1210USA003396

PATIENT
  Sex: Female
  Weight: 61.22 kg

DRUGS (4)
  1. CLARITIN [Suspect]
     Indication: HYPERSENSITIVITY
     Dosage: 10 mg, qd
     Route: 048
     Dates: start: 20120801
  2. CLARITIN [Suspect]
     Indication: MEDICAL OBSERVATION
  3. BENICAR [Concomitant]
     Indication: HYPERTENSION
     Dosage: UNK, Unknown
  4. BISOPROLOL [Concomitant]
     Indication: HYPERTENSION
     Dosage: UNK, Unknown

REACTIONS (4)
  - Malaise [Recovered/Resolved]
  - Asthenia [Unknown]
  - Lethargy [Recovered/Resolved]
  - Feeling abnormal [Recovered/Resolved]
